FAERS Safety Report 9232111 (Version 1)
Quarter: 2013Q2

REPORT INFORMATION
  Report Type: Spontaneous
  Country: US (occurrence: US)
  Receive Date: 20130415
  Receipt Date: 20130415
  Transmission Date: 20140414
  Serious: No
  Sender: FDA-Public Use
  Company Number: US-PFIZER INC-2013112997

PATIENT
  Age: 53 Year
  Sex: Female
  Weight: 76.19 kg

DRUGS (4)
  1. PROSTIN VR [Suspect]
     Indication: RAYNAUD^S PHENOMENON
     Dosage: UNK
     Route: 042
     Dates: start: 20130407
  2. DILAUDID [Concomitant]
     Indication: PAIN
     Dosage: 1 MG, AS NEEDED
     Route: 042
  3. TORADOL [Concomitant]
     Indication: PAIN
     Dosage: 50 MG, AS NEEDED
     Route: 042
  4. ZOFRAN [Concomitant]
     Indication: PAIN
     Dosage: 4 MG, AS NEEDED
     Route: 042

REACTIONS (4)
  - Injection site erythema [Recovering/Resolving]
  - Pain in extremity [Recovering/Resolving]
  - Blood glucose increased [Unknown]
  - Off label use [Not Recovered/Not Resolved]
